FAERS Safety Report 5263368-2 (Version None)
Quarter: 2007Q1

REPORT INFORMATION
  Report Type: 
  Country: None (occurrence: None)
  Receive Date: 20070313
  Receipt Date: 20070308
  Transmission Date: 20070707
  Serious: Yes (Hospitalization, Other)
  Sender: FDA-Public Use
  Company Number: FR-ELI_LILLY_AND_COMPANY-FR_050506348

PATIENT
  Age: 27 Year
  Sex: Female
  Weight: 70 kg

DRUGS (8)
  1. ZYPREXA [Suspect]
     Indication: SCHIZOPHRENIA, PARANOID TYPE
     Dosage: 20 MG, DAILY (1/D)
     Route: 048
     Dates: start: 20011109, end: 20030901
  2. ZYPREXA [Suspect]
     Dosage: 20 MG, DAILY (1/D)
     Route: 048
     Dates: start: 20030901, end: 20040101
  3. ZYPREXA [Suspect]
     Dosage: 20 MG, DAILY (1/D)
     Route: 048
     Dates: start: 20040601
  4. NOZINAN [Concomitant]
     Dosage: 25 MG, DAILY (1/D)
     Route: 048
     Dates: start: 20040607, end: 20041230
  5. TEMESTA [Concomitant]
     Dosage: 1 MG, DAILY (1/D)
     Route: 048
     Dates: start: 20040602, end: 20041230
  6. ANAFRANIL [Concomitant]
     Dosage: 75 MG, DAILY (1/D)
     Route: 048
     Dates: start: 20040318, end: 20041230
  7. IXEL [Concomitant]
     Indication: DEPRESSION
     Dosage: 50 MG, 2/D
     Route: 048
     Dates: start: 20021110, end: 20020903
  8. TRANXENE [Concomitant]
     Indication: ANXIETY
     Dosage: 5 MG, DAILY (1/D)
     Route: 048
     Dates: start: 20000811, end: 20020903

REACTIONS (9)
  - AGGRESSION [None]
  - DEPRESSION [None]
  - DRUG EXPOSURE DURING PREGNANCY [None]
  - FEELING GUILTY [None]
  - FOOT FRACTURE [None]
  - GRAND MAL CONVULSION [None]
  - MARITAL PROBLEM [None]
  - PELVIC FRACTURE [None]
  - SUICIDE ATTEMPT [None]
